FAERS Safety Report 4799784-2 (Version None)
Quarter: 2005Q4

REPORT INFORMATION
  Report Type: 
  Country: None (occurrence: None)
  Receive Date: 20051011
  Receipt Date: 20051011
  Transmission Date: 20060501
  Serious: Yes (Life-Threatening)
  Sender: FDA-Public Use
  Company Number: None

PATIENT
  Sex: Male
  Weight: 75.7507 kg

DRUGS (2)
  1. ENBREL [Suspect]
     Indication: ANKYLOSING SPONDYLITIS
     Dosage: 50 MG  SQ  WEEKLY
     Route: 058
     Dates: start: 20040324, end: 20040501
  2. ANTIDEPRESSANTS [Concomitant]

REACTIONS (2)
  - PNEUMONIA STAPHYLOCOCCAL [None]
  - STAPHYLOCOCCAL SEPSIS [None]
